FAERS Safety Report 15680237 (Version 5)
Quarter: 2019Q1

REPORT INFORMATION
  Report Type: Spontaneous
  Country: ES (occurrence: ES)
  Receive Date: 20181203
  Receipt Date: 20190218
  Transmission Date: 20190417
  Serious: Yes (Hospitalization, Other)
  Sender: FDA-Public Use
  Company Number: ES-AUROBINDO-AUR-APL-2018-058272

PATIENT
  Age: 57 Year
  Sex: Male

DRUGS (4)
  1. ERTAPENEM. [Concomitant]
     Active Substance: ERTAPENEM SODIUM
     Indication: OSTEOMYELITIS
     Dosage: 200 MILLIGRAM, ONCE A DAY
     Route: 065
  2. ERTAPENEM. [Concomitant]
     Active Substance: ERTAPENEM SODIUM
     Indication: INTERVERTEBRAL DISCITIS
  3. LINEZOLID. [Suspect]
     Active Substance: LINEZOLID
     Indication: OSTEOMYELITIS
     Dosage: 600 MILLIGRAM, TWO TIMES A DAY
     Route: 065
  4. LINEZOLID. [Suspect]
     Active Substance: LINEZOLID
     Indication: INTERVERTEBRAL DISCITIS

REACTIONS (8)
  - Bone marrow failure [Unknown]
  - Anaemia [Recovering/Resolving]
  - Haemoglobin decreased [Unknown]
  - Off label use [Unknown]
  - Toxicity to various agents [Unknown]
  - Haematotoxicity [Recovering/Resolving]
  - Thrombocytopenia [Recovered/Resolved]
  - Metabolic acidosis [Not Recovered/Not Resolved]
